FAERS Safety Report 8186135-9 (Version None)
Quarter: 2012Q1

REPORT INFORMATION
  Report Type: 
  Country: None (occurrence: None)
  Receive Date: 20120306
  Receipt Date: 20120229
  Transmission Date: 20120608
  Serious: No
  Sender: FDA-Public Use
  Company Number: US-PFIZER INC-2012055685

PATIENT
  Sex: Male

DRUGS (1)
  1. SUTENT [Suspect]
     Indication: CARCINOID TUMOUR
     Dosage: 50 MG, 1X/DAY

REACTIONS (6)
  - ABDOMINAL DISTENSION [None]
  - PAIN [None]
  - SCRATCH [None]
  - HAEMORRHOIDS [None]
  - ASTHENIA [None]
  - INFLUENZA [None]
